FAERS Safety Report 6997987-X (Version None)
Quarter: 2010Q3

REPORT INFORMATION
  Report Type: 
  Country: None (occurrence: None)
  Receive Date: 20100920
  Receipt Date: 20100521
  Transmission Date: 20110219
  Serious: No
  Sender: FDA-Public Use
  Company Number: US-ASTRAZENECA-2009UW17583

PATIENT
  Age: 21202 Day
  Sex: Female
  Weight: 78.5 kg

DRUGS (9)
  1. SEROQUEL [Suspect]
     Indication: DEPRESSION
     Dosage: 25MG-75MG AT NIGHT
     Route: 048
     Dates: start: 20071005, end: 20080509
  2. SEROQUEL [Suspect]
     Indication: ANGER
     Dosage: 25MG-75MG AT NIGHT
     Route: 048
     Dates: start: 20071005, end: 20080509
  3. SEROQUEL [Suspect]
     Indication: AFFECTIVE DISORDER
     Dosage: 25MG-75MG AT NIGHT
     Route: 048
     Dates: start: 20071005, end: 20080509
  4. SEROQUEL [Suspect]
     Route: 048
     Dates: start: 20080101, end: 20080501
  5. SEROQUEL [Suspect]
     Route: 048
     Dates: start: 20080101, end: 20080501
  6. SEROQUEL [Suspect]
     Route: 048
     Dates: start: 20080101, end: 20080501
  7. LEXAPRO [Concomitant]
     Indication: DEPRESSION
     Dates: start: 20071005
  8. CELEXA [Concomitant]
     Dates: start: 20071011
  9. CYMBALTA [Concomitant]

REACTIONS (2)
  - OBESITY [None]
  - TYPE 2 DIABETES MELLITUS [None]
